FAERS Safety Report 6883464-3 (Version None)
Quarter: 2010Q3

REPORT INFORMATION
  Report Type: 
  Country: None (occurrence: None)
  Receive Date: 20100729
  Receipt Date: 20100720
  Transmission Date: 20110219
  Serious: Yes (Hospitalization)
  Sender: FDA-Public Use
  Company Number: GXKR2010NL08170

PATIENT
  Sex: Female
  Weight: 70 kg

DRUGS (7)
  1. METFORMIN HYDROCHLORIDE SANDOZ (NGX) [Suspect]
     Indication: DIABETES MELLITUS
     Dosage: 1 DF, TID
     Route: 048
     Dates: start: 19930101, end: 20100101
  2. SIMVASTATIN [Concomitant]
  3. FERROFUMARAT [Concomitant]
  4. NIFEDIPINE [Concomitant]
  5. PANTOPRAZOLE [Concomitant]
  6. CALCIUM CARBONATE [Concomitant]
     Dosage: 1 DF, QD
  7. NOVONORM [Concomitant]
     Dosage: 2.5 DF, TID

REACTIONS (2)
  - LACTIC ACIDOSIS [None]
  - RENAL FAILURE ACUTE [None]
